FAERS Safety Report 10510136 (Version 1)
Quarter: 2014Q4

REPORT INFORMATION
  Report Type: Spontaneous
  Country: US (occurrence: None)
  Receive Date: 20141009
  Receipt Date: 20141009
  Transmission Date: 20150528
  Serious: No
  Sender: FDA-Public Use
  Company Number: None

PATIENT
  Age: 66 Year
  Sex: Female
  Weight: 52.16 kg

DRUGS (3)
  1. AZITHROMYCIN [Suspect]
     Active Substance: AZITHROMYCIN ANHYDROUS
     Indication: COUGH
     Dosage: TAKE 2 PILLS FIRST DAY?1 @ DAY FORWARD UNTIL PILLS GONE
     Route: 048
     Dates: start: 20131030, end: 20131103
  2. AZITHROMYCIN [Suspect]
     Active Substance: AZITHROMYCIN ANHYDROUS
     Indication: PULMONARY CONGESTION
     Dosage: TAKE 2 PILLS FIRST DAY?1 @ DAY FORWARD UNTIL PILLS GONE
     Route: 048
     Dates: start: 20131030, end: 20131103
  3. ASPRIN [Concomitant]
     Active Substance: ASPIRIN

REACTIONS (9)
  - Dyspnoea [None]
  - Joint range of motion decreased [None]
  - Mobility decreased [None]
  - Feeling abnormal [None]
  - Lung disorder [None]
  - Fatigue [None]
  - Pain [None]
  - General physical health deterioration [None]
  - Influenza like illness [None]

NARRATIVE: CASE EVENT DATE: 201311
